FAERS Safety Report 17758552 (Version 1)
Quarter: 2020Q2

REPORT INFORMATION
  Report Type: Spontaneous
  Country: FR (occurrence: FR)
  Receive Date: 20200508
  Receipt Date: 20200508
  Transmission Date: 20200714
  Serious: Yes (Hospitalization)
  Sender: FDA-Public Use
  Company Number: FR-BEH-2020116946

PATIENT
  Age: 74 Year
  Sex: Male

DRUGS (13)
  1. PREVNAR 13 [Concomitant]
     Active Substance: PNEUMOCOCCAL 13-VALENT CONJUGATE VACCINE
     Route: 058
     Dates: start: 20200221
  2. ROVAMYCINE [SPIRAMYCIN ADEPATE] [Concomitant]
     Active Substance: SPIRAMYCIN ADIPATE
     Dosage: 4.5 MEGA-INTERNATIONAL UNIT, QD
     Route: 042
     Dates: start: 20200214, end: 20200217
  3. PIPERACILLINE [Concomitant]
     Active Substance: PIPERACILLIN SODIUM
     Route: 042
     Dates: start: 20200214, end: 20200217
  4. CORDARONE [Concomitant]
     Active Substance: AMIODARONE HYDROCHLORIDE
     Route: 048
  5. AUGMENTINE [AMOXICILLIN TRIHYDRATE;CLAVULANATE POTASSIUM] [Concomitant]
     Active Substance: AMOXICILLIN\CLAVULANATE POTASSIUM
     Dosage: 6 DOSAGE FORM, QD
     Route: 048
     Dates: start: 20200219, end: 20200224
  6. PRIVIGEN [Suspect]
     Active Substance: HUMAN IMMUNOGLOBULIN G
     Indication: CHRONIC LYMPHOCYTIC LEUKAEMIA
     Route: 042
     Dates: start: 20200225, end: 20200225
  7. BISOPROLOL [BISOPROLOL FUMARATE] [Concomitant]
     Active Substance: BISOPROLOL FUMARATE
     Route: 048
  8. GAZYVARO [Concomitant]
     Active Substance: OBINUTUZUMAB
     Route: 042
     Dates: end: 201812
  9. TAMIFLU [Concomitant]
     Active Substance: OSELTAMIVIR PHOSPHATE
     Route: 048
     Dates: start: 20200214, end: 20200217
  10. ELIQUIS [Concomitant]
     Active Substance: APIXABAN
     Route: 048
  11. PARACETAMOL [Concomitant]
     Active Substance: ACETAMINOPHEN
     Route: 048
  12. CHLORAMINOPHENE [Concomitant]
     Active Substance: CHLORAMBUCIL
     Dosage: UNK
     Route: 048
     Dates: end: 201812
  13. TAZOBACTAM [Concomitant]
     Active Substance: TAZOBACTAM
     Route: 042
     Dates: start: 20200214, end: 20200217

REACTIONS (1)
  - Agranulocytosis [Recovered/Resolved]

NARRATIVE: CASE EVENT DATE: 20200226
